FAERS Safety Report 10623966 (Version 1)
Quarter: 2014Q4

REPORT INFORMATION
  Report Type: Spontaneous
  Country: US (occurrence: US)
  Receive Date: 20141203
  Receipt Date: 20141203
  Transmission Date: 20150529
  Serious: No
  Sender: FDA-Public Use
  Company Number: US-SA-2014SA040182

PATIENT

DRUGS (1)
  1. RENVELA [Suspect]
     Active Substance: SEVELAMER CARBONATE
     Indication: PRODUCT USED FOR UNKNOWN INDICATION
     Dosage: RENVELA TABLETS 800 MG, 4-5 TABLETS WITH MEALS/ 3 TIMES A DAY
     Route: 048

REACTIONS (1)
  - Pruritus [Not Recovered/Not Resolved]
